FAERS Safety Report 4471992-X (Version None)
Quarter: 2004Q4

REPORT INFORMATION
  Report Type: 
  Country: None (occurrence: None)
  Receive Date: 20041007
  Receipt Date: 20040924
  Transmission Date: 20050328
  Serious: Yes (Hospitalization, Other)
  Sender: FDA-Public Use
  Company Number: 2004070869

PATIENT
  Age: 65 Year
  Sex: Female

DRUGS (2)
  1. VFEND [Suspect]
     Indication: CANDIDA SEPSIS
     Dosage: (200 MG, 2 IN 1 D), INTRAVENOUS
     Route: 042
     Dates: start: 20040916
  2. DRUG, UNSPECIFIED [Concomitant]

REACTIONS (5)
  - COAGULOPATHY [None]
  - ERYTHROPOIESIS ABNORMAL [None]
  - PLATELET FUNCTION TEST ABNORMAL [None]
  - THROMBIN TIME PROLONGED [None]
  - THROMBOCYTOPENIA [None]
